FAERS Safety Report 4600436-X (Version None)
Quarter: 2005Q1

REPORT INFORMATION
  Report Type: 
  Country: None (occurrence: None)
  Receive Date: 20050304
  Receipt Date: 20050207
  Transmission Date: 20050727
  Serious: Yes (Other)
  Sender: FDA-Public Use
  Company Number: SU-2005-003129

PATIENT
  Age: 40 Year
  Sex: Male

DRUGS (1)
  1. OLMETEC [Suspect]
     Indication: HYPERTENSION
     Dosage: 20 MG PO
     Route: 048
     Dates: start: 20050101

REACTIONS (2)
  - ARRHYTHMIA [None]
  - COUGH [None]
